FAERS Safety Report 13449026 (Version 3)
Quarter: 2017Q2

REPORT INFORMATION
  Report Type: Spontaneous
  Country: US (occurrence: US)
  Receive Date: 20170417
  Receipt Date: 20170515
  Transmission Date: 20170830
  Serious: Yes (Other)
  Sender: FDA-Public Use
  Company Number: US-TEVA-760399ACC

PATIENT
  Age: 40 Year
  Sex: Female
  Weight: 74 kg

DRUGS (1)
  1. PARAGARD T 380A [Suspect]
     Active Substance: COPPER
     Indication: CONTRACEPTION
     Dates: start: 20071120, end: 20170404

REACTIONS (4)
  - Device breakage [Recovered/Resolved]
  - Pelvic pain [Recovered/Resolved]
  - Complication associated with device [Recovered/Resolved]
  - Vaginal haemorrhage [Not Recovered/Not Resolved]

NARRATIVE: CASE EVENT DATE: 201703
